FAERS Safety Report 17255019 (Version 3)
Quarter: 2020Q1

REPORT INFORMATION
  Report Type: Spontaneous
  Country: IT (occurrence: IT)
  Receive Date: 20200109
  Receipt Date: 20200302
  Transmission Date: 20200409
  Serious: Yes (Life-Threatening, Hospitalization, Other)
  Sender: FDA-Public Use
  Company Number: IT-BAXTER-2019BAX026738

PATIENT
  Age: 16 Year
  Sex: Male
  Weight: 50 kg

DRUGS (9)
  1. SUGAMMADEX [Suspect]
     Active Substance: SUGAMMADEX
     Indication: NEUROMUSCULAR BLOCKADE
     Route: 042
     Dates: start: 20190222, end: 20190222
  2. ROCURONIUM [Suspect]
     Active Substance: ROCURONIUM BROMIDE
     Indication: GENERAL ANAESTHESIA
  3. REMIFENTANIL [Suspect]
     Active Substance: REMIFENTANIL
     Indication: MAINTENANCE OF ANAESTHESIA
     Route: 042
     Dates: start: 20190222, end: 20190222
  4. REMIFENTANIL [Suspect]
     Active Substance: REMIFENTANIL
     Indication: GENERAL ANAESTHESIA
  5. UNIFOL 20 MG/ML, EMULSIONE PER INIEZIONE O INFUSIONE [Suspect]
     Active Substance: PROPOFOL
     Indication: GENERAL ANAESTHESIA
     Route: 042
     Dates: start: 20190222, end: 20190222
  6. SEVOFLURANE BAXTER [Suspect]
     Active Substance: SEVOFLURANE
     Indication: MAINTENANCE OF ANAESTHESIA
     Dosage: INHALATION
     Route: 055
     Dates: start: 20190222, end: 20190222
  7. UNIFOL 20 MG/ML, EMULSIONE PER INIEZIONE O INFUSIONE [Suspect]
     Active Substance: PROPOFOL
     Indication: ENDOTRACHEAL INTUBATION
  8. ROCURONIUM [Suspect]
     Active Substance: ROCURONIUM BROMIDE
     Indication: ENDOTRACHEAL INTUBATION
     Route: 042
     Dates: start: 20190222, end: 20190222
  9. REMIFENTANIL [Suspect]
     Active Substance: REMIFENTANIL
     Indication: ENDOTRACHEAL INTUBATION
     Dosage: 0.25-0.125 MCG/KG/MIN
     Route: 042
     Dates: start: 20190222, end: 20190222

REACTIONS (3)
  - Pulmonary alveolar haemorrhage [Recovered/Resolved]
  - Respiratory failure [Recovered/Resolved]
  - Haemoptysis [Recovered/Resolved]

NARRATIVE: CASE EVENT DATE: 20190222
